FAERS Safety Report 20178064 (Version 1)
Quarter: 2021Q4

REPORT INFORMATION
  Report Type: Spontaneous
  Country: US (occurrence: US)
  Receive Date: 20211213
  Receipt Date: 20211213
  Transmission Date: 20220303
  Serious: No
  Sender: FDA-Public Use
  Company Number: US-SA-SAC20211208000114

PATIENT
  Age: 61 Year
  Sex: Male

DRUGS (9)
  1. DUPIXENT [Suspect]
     Active Substance: DUPILUMAB
     Indication: Asthma
     Dosage: 300 MG, QOW
     Route: 058
     Dates: start: 20201211
  2. DICLOFENAC [Concomitant]
     Active Substance: DICLOFENAC
  3. FINASTERIDE [Concomitant]
     Active Substance: FINASTERIDE
  4. GABAPENTIN [Concomitant]
     Active Substance: GABAPENTIN
  5. ROSUVASTATIN [Concomitant]
     Active Substance: ROSUVASTATIN
  6. SERTRALINE [Concomitant]
     Active Substance: SERTRALINE HYDROCHLORIDE
  7. TADALAFIL [Concomitant]
     Active Substance: TADALAFIL
  8. TAMSULOSIN [Concomitant]
     Active Substance: TAMSULOSIN
  9. BUROPION [Concomitant]

REACTIONS (2)
  - Impaired quality of life [Unknown]
  - Product use issue [Unknown]

NARRATIVE: CASE EVENT DATE: 20201211
